FAERS Safety Report 11652875 (Version 1)
Quarter: 2015Q4

REPORT INFORMATION
  Report Type: Spontaneous
  Country: US (occurrence: None)
  Receive Date: 20151022
  Receipt Date: 20151022
  Transmission Date: 20160304
  Serious: Yes (Other)
  Sender: FDA-Public Use
  Company Number: US-MDT-ADR-2015-01995

PATIENT
  Age: 80 Year
  Sex: Male

DRUGS (1)
  1. COMPOUNDED BACLOFEN INTRATHECAL 600MCG/ML [Suspect]
     Active Substance: BACLOFEN
     Indication: MUSCLE SPASTICITY
     Dosage: 133.57MCG/DAY

REACTIONS (2)
  - No therapeutic response [None]
  - Muscle spasticity [None]
